FAERS Safety Report 19744706 (Version 1)
Quarter: 2021Q3

REPORT INFORMATION
  Report Type: Spontaneous
  Country: US (occurrence: US)
  Receive Date: 20210821
  Receipt Date: 20210821
  Transmission Date: 20211014
  Serious: Yes (Hospitalization)
  Sender: FDA-Public Use
  Company Number: None

PATIENT
  Age: 69 Year
  Sex: Female
  Weight: 33 kg

DRUGS (4)
  1. ELOXATIN [Suspect]
     Active Substance: OXALIPLATIN
     Dates: end: 20210728
  2. CAMPTOSAR [Suspect]
     Active Substance: IRINOTECAN HYDROCHLORIDE
     Dates: end: 20210728
  3. LEUCOVORIN CALCIUM. [Suspect]
     Active Substance: LEUCOVORIN CALCIUM
     Dates: end: 20210728
  4. 5?FLUOROURACIL [Suspect]
     Active Substance: FLUOROURACIL
     Dates: end: 20210730

REACTIONS (7)
  - Dehydration [None]
  - Vomiting [None]
  - Neutropenia [None]
  - Pancreatic carcinoma [None]
  - Food intolerance [None]
  - Intestinal obstruction [None]
  - Thrombocytopenia [None]

NARRATIVE: CASE EVENT DATE: 20210802
